FAERS Safety Report 22336563 (Version 1)
Quarter: 2023Q2

REPORT INFORMATION
  Report Type: Spontaneous
  Country: US (occurrence: None)
  Receive Date: 20230518
  Receipt Date: 20230518
  Transmission Date: 20230722
  Serious: No
  Sender: FDA-Public Use
  Company Number: US-ROCHE-3172101

PATIENT
  Age: 60 Year
  Sex: Female
  Weight: 54.48 kg

DRUGS (4)
  1. ACTEMRA [Suspect]
     Active Substance: TOCILIZUMAB
     Indication: Pulmonary fibrosis
     Dosage: STRENGTH: 162MG/0.9 ML
     Route: 058
     Dates: start: 202206
  2. ACTEMRA [Suspect]
     Active Substance: TOCILIZUMAB
  3. OMEPRAZOLE [Concomitant]
     Active Substance: OMEPRAZOLE
  4. CEVIMELINE [Concomitant]
     Active Substance: CEVIMELINE
     Dosage: PATIENT USES MEDICATION 2 TIMES PER DAY. NOT AS PRESCRIBED

REACTIONS (5)
  - Nasal congestion [Not Recovered/Not Resolved]
  - Product administered at inappropriate site [Unknown]
  - Underdose [Unknown]
  - Off label use [Unknown]
  - Limb injury [Not Recovered/Not Resolved]

NARRATIVE: CASE EVENT DATE: 20220823
